FAERS Safety Report 17232319 (Version 1)
Quarter: 2020Q1

REPORT INFORMATION
  Report Type: Spontaneous
  Country: DE (occurrence: DE)
  Receive Date: 20200103
  Receipt Date: 20200103
  Transmission Date: 20200409
  Serious: Yes (Congenital Anomaly)
  Sender: FDA-Public Use
  Company Number: DE-ALLERGAN-1953374US

PATIENT
  Sex: Male

DRUGS (5)
  1. MESALAZINE UNK [Suspect]
     Active Substance: MESALAMINE
     Indication: EXPOSURE DURING PREGNANCY
     Dosage: DURING ALL TRIMESTERS
     Route: 064
  2. OMEPRAZOLE. [Suspect]
     Active Substance: OMEPRAZOLE
     Indication: EXPOSURE DURING PREGNANCY
     Dosage: DURING ALL TRIMESTERS
     Route: 064
  3. MOMETASONE [Suspect]
     Active Substance: MOMETASONE
     Indication: EXPOSURE DURING PREGNANCY
     Dosage: DURING THE FIRST TRIMESTER
     Route: 064
  4. PARACETAMOL [Suspect]
     Active Substance: ACETAMINOPHEN
     Indication: EXPOSURE DURING PREGNANCY
     Dosage: AT GESTATIONAL WEEK 8+5
     Route: 064
  5. AZATHIOPRINE. [Suspect]
     Active Substance: AZATHIOPRINE
     Indication: EXPOSURE DURING PREGNANCY
     Dosage: DURING THE FIRST TRIMESTER
     Route: 064

REACTIONS (2)
  - Pregnancy [Unknown]
  - Congenital cystic kidney disease [Unknown]
